FAERS Safety Report 18572576 (Version 1)
Quarter: 2020Q4

REPORT INFORMATION
  Report Type: Spontaneous
  Country: CN (occurrence: CN)
  Receive Date: 20201202
  Receipt Date: 20201202
  Transmission Date: 20210114
  Serious: Yes (Hospitalization)
  Sender: FDA-Public Use
  Company Number: CN-ASTRAZENECA-2020SF59084

PATIENT
  Age: 20195 Day
  Sex: Male
  Weight: 92 kg

DRUGS (1)
  1. DAPAGLIFLOZIN. [Suspect]
     Active Substance: DAPAGLIFLOZIN
     Indication: BLOOD GLUCOSE DECREASED
     Route: 048
     Dates: start: 20201013, end: 20201021

REACTIONS (3)
  - Pollakiuria [Recovering/Resolving]
  - Dysuria [Recovering/Resolving]
  - Micturition urgency [Recovering/Resolving]

NARRATIVE: CASE EVENT DATE: 20201021
